FAERS Safety Report 7742866-3 (Version None)
Quarter: 2011Q3

REPORT INFORMATION
  Report Type: 
  Country: None (occurrence: None)
  Receive Date: 20110912
  Receipt Date: 20110909
  Transmission Date: 20111222
  Serious: Yes (Other)
  Sender: FDA-Public Use
  Company Number: IT-SANOFI-AVENTIS-2011SA058353

PATIENT
  Age: 80 Year
  Sex: Female

DRUGS (3)
  1. ELOXATIN [Suspect]
     Route: 041
     Dates: start: 20110426, end: 20110426
  2. ELOXATIN [Suspect]
     Route: 041
     Dates: start: 20110517, end: 20110517
  3. XELODA [Suspect]
     Route: 048
     Dates: start: 20110426, end: 20110517

REACTIONS (1)
  - HALLUCINATION, VISUAL [None]
